FAERS Safety Report 4286516-X (Version None)
Quarter: 2004Q1

REPORT INFORMATION
  Report Type: 
  Country: None (occurrence: None)
  Receive Date: 20040204
  Receipt Date: 20040122
  Transmission Date: 20041129
  Serious: Yes (Death, Hospitalization)
  Sender: FDA-Public Use
  Company Number: US-JNJFOC-20031105221

PATIENT
  Age: 57 Year
  Sex: Female
  Weight: 74.3899 kg

DRUGS (4)
  1. REMICADE [Suspect]
     Indication: RHEUMATOID ARTHRITIS
     Dosage: 400 MG, 1 IN 8 WEEK, INTRAVENOUS
     Route: 042
     Dates: start: 20010401
  2. STEROIDS (CORTICOSTEROIDS NOS) [Concomitant]
  3. AZATHIOPRINE [Concomitant]
  4. PREDNISONE [Concomitant]

REACTIONS (1)
  - PNEUMONIA [None]
